FAERS Safety Report 8024886-7 (Version None)
Quarter: 2012Q1

REPORT INFORMATION
  Report Type: 
  Country: None (occurrence: None)
  Receive Date: 20120105
  Receipt Date: 20120104
  Transmission Date: 20120608
  Serious: Yes (Hospitalization, Other)
  Sender: FDA-Public Use
  Company Number: PHHY2011DE66196

PATIENT
  Sex: Female
  Weight: 53 kg

DRUGS (4)
  1. ZOMETA [Suspect]
     Indication: METASTASES TO BONE
     Dosage: 4 MG, EVERY 4 WEEKS
     Route: 042
  2. NAVELBINE [Concomitant]
     Dosage: 30 MG, UNK
     Dates: start: 20100301
  3. IBANDRONATE SODIUM [Suspect]
     Dosage: 6 MG, EVERY 4 WEEKS
     Route: 042
     Dates: start: 19980101, end: 20080801
  4. ZOMETA [Suspect]
     Dosage: 4 MG, EVERY 4 WEEKS
     Route: 042
     Dates: start: 20090801

REACTIONS (6)
  - PAIN [None]
  - NEOPLASM PROGRESSION [None]
  - METASTASES TO GASTROINTESTINAL TRACT [None]
  - NEOPLASM MALIGNANT [None]
  - OSTEONECROSIS OF JAW [None]
  - APHAGIA [None]
